FAERS Safety Report 8986969 (Version 1)
Quarter: 2012Q4

REPORT INFORMATION
  Report Type: 
  Country: CN (occurrence: CN)
  Receive Date: 20121226
  Receipt Date: 20121226
  Transmission Date: 20130627
  Serious: Yes (Other)
  Sender: FDA-Public Use
  Company Number: CN-BAYER-2012-133624

PATIENT
  Age: 91 Year
  Sex: Female
  Weight: 45 kg

DRUGS (1)
  1. BAYASPIRIN [Suspect]
     Indication: ANTICOAGULANT THERAPY
     Dosage: 100 mg, QD
     Route: 048
     Dates: start: 20100628, end: 20100629

REACTIONS (4)
  - Erythema [Recovering/Resolving]
  - Oedema [Recovering/Resolving]
  - Skin exfoliation [Recovering/Resolving]
  - Dermatitis [Recovering/Resolving]
